FAERS Safety Report 6905612-9 (Version None)
Quarter: 2010Q3

REPORT INFORMATION
  Report Type: 
  Country: None (occurrence: None)
  Receive Date: 20100804
  Receipt Date: 20100722
  Transmission Date: 20110219
  Serious: Yes (Death, Other)
  Sender: FDA-Public Use
  Company Number: FR-BAYER-201034198GPV

PATIENT
  Age: 36 Year
  Sex: Male

DRUGS (5)
  1. FLUDARABINE [Suspect]
     Indication: ACUTE MYELOID LEUKAEMIA
  2. BUSULFAN [Suspect]
     Indication: ACUTE MYELOID LEUKAEMIA
  3. ANTILYMPHOCYTE SERUM [Suspect]
     Indication: STEM CELL TRANSPLANT
  4. MYCOPHENOLATE MOFETIL [Suspect]
     Indication: ACUTE GRAFT VERSUS HOST DISEASE IN SKIN
  5. CORTICOSTEROIDS [Suspect]
     Indication: ACUTE GRAFT VERSUS HOST DISEASE IN SKIN

REACTIONS (13)
  - ACUTE GRAFT VERSUS HOST DISEASE IN SKIN [None]
  - ADENOVIRAL HEPATITIS [None]
  - ASTHENIA [None]
  - COUGH [None]
  - CYTOLYTIC HEPATITIS [None]
  - DISSEMINATED INTRAVASCULAR COAGULATION [None]
  - ENCEPHALOPATHY [None]
  - HEPATIC FAILURE [None]
  - HEPATIC NECROSIS [None]
  - MULTI-ORGAN FAILURE [None]
  - PYREXIA [None]
  - RESPIRATORY DISTRESS [None]
  - VASOPLEGIA SYNDROME [None]
